FAERS Safety Report 10707393 (Version 1)
Quarter: 2015Q1

REPORT INFORMATION
  Report Type: Spontaneous
  Country: US (occurrence: None)
  Receive Date: 20150112
  Receipt Date: 20150112
  Transmission Date: 20150721
  Serious: No
  Sender: FDA-Public Use
  Company Number: None

PATIENT
  Sex: Female
  Weight: 78.02 kg

DRUGS (2)
  1. AMLODIPINE [Suspect]
     Active Substance: AMLODIPINE BESYLATE
     Indication: UNEVALUABLE EVENT
     Route: 048
     Dates: start: 20131108, end: 20131206
  2. BENZAPRIL [Suspect]
     Active Substance: BENAZEPRIL\BENAZEPRIL HYDROCHLORIDE
     Indication: UNEVALUABLE EVENT
     Route: 048
     Dates: start: 20131108, end: 20131206

REACTIONS (3)
  - Blood pressure increased [None]
  - Dizziness [None]
  - Blood pressure inadequately controlled [None]
